FAERS Safety Report 9351921 (Version 1)
Quarter: 2013Q2

REPORT INFORMATION
  Report Type: Spontaneous
  Country: JP (occurrence: JP)
  Receive Date: 20130617
  Receipt Date: 20130617
  Transmission Date: 20140414
  Serious: Yes (Other)
  Sender: FDA-Public Use
  Company Number: JP-GLAXOSMITHKLINE-B0899674A

PATIENT
  Sex: Female

DRUGS (6)
  1. LAMICTAL [Suspect]
     Indication: BIPOLAR DISORDER
     Route: 048
  2. LAMICTAL [Suspect]
     Indication: BIPOLAR DISORDER
     Route: 048
  3. LAMICTAL [Suspect]
     Indication: BIPOLAR DISORDER
     Route: 048
  4. ZYPREXA [Concomitant]
     Route: 048
  5. HYPNOTIC + SEDATIVE [Concomitant]
     Indication: POOR QUALITY SLEEP
     Route: 048
  6. ANXIOLYTICS [Concomitant]
     Indication: POOR QUALITY SLEEP
     Route: 048

REACTIONS (7)
  - Hip fracture [Unknown]
  - Muscular weakness [Unknown]
  - Balance disorder [Unknown]
  - Fall [Unknown]
  - Gait disturbance [Unknown]
  - Dyspnoea [Unknown]
  - Balance disorder [Unknown]
